FAERS Safety Report 17545134 (Version 1)
Quarter: 2020Q1

REPORT INFORMATION
  Report Type: Report from Study
  Country: NZ (occurrence: NZ)
  Receive Date: 20200316
  Receipt Date: 20200316
  Transmission Date: 20200409
  Serious: Yes (Hospitalization)
  Sender: FDA-Public Use
  Company Number: NZ-MYLANLABS-2020M1028438

PATIENT

DRUGS (1)
  1. CAPECITABINE. [Suspect]
     Active Substance: CAPECITABINE
     Indication: NEOPLASM MALIGNANT
     Dosage: ORAL CAPECITABINE TWICE DAILY FOR 14 DAYS OF EVERY 3-WEEK CYCLE [ DOSE NOT STATED ]
     Route: 048

REACTIONS (7)
  - Atrial fibrillation [Unknown]
  - Acute kidney injury [Unknown]
  - Aspiration [Unknown]
  - Diarrhoea [Unknown]
  - Hyperbilirubinaemia [Unknown]
  - Decreased appetite [Unknown]
  - Gastric haemorrhage [Unknown]
